FAERS Safety Report 14873104 (Version 2)
Quarter: 2018Q2

REPORT INFORMATION
  Report Type: Spontaneous
  Country: JP (occurrence: JP)
  Receive Date: 20180510
  Receipt Date: 20180514
  Transmission Date: 20180711
  Serious: Yes (Other)
  Sender: FDA-Public Use
  Company Number: JP-LUPIN PHARMACEUTICALS INC.-2018-03444

PATIENT
  Age: 66 Year
  Sex: Female

DRUGS (1)
  1. QUETIAPINE. [Suspect]
     Active Substance: QUETIAPINE
     Indication: SCHIZOPHRENIA
     Dosage: 150 MG, QD
     Route: 065

REACTIONS (7)
  - Hypertension [Unknown]
  - Hyperhidrosis [Unknown]
  - Pyrexia [Unknown]
  - Dysuria [Unknown]
  - Tachycardia [Unknown]
  - Blood creatine phosphokinase increased [Recovered/Resolved]
  - Muscle rigidity [Unknown]
